FAERS Safety Report 24287643 (Version 1)
Quarter: 2024Q3

REPORT INFORMATION
  Report Type: Spontaneous
  Country: US (occurrence: US)
  Receive Date: 20240905
  Receipt Date: 20240905
  Transmission Date: 20241016
  Serious: No
  Sender: Apozeal Pharmaceuticals
  Company Number: US-Apozeal Pharmaceuticals-2161226

PATIENT
  Sex: Male

DRUGS (2)
  1. LACTULOSE [Suspect]
     Active Substance: LACTULOSE
     Indication: Constipation
     Route: 065
  2. DEXTROSE\WATER [Concomitant]
     Active Substance: DEXTROSE\WATER
     Route: 065

REACTIONS (1)
  - Drug ineffective for unapproved indication [Unknown]
